FAERS Safety Report 7015844-X (Version None)
Quarter: 2010Q3

REPORT INFORMATION
  Report Type: 
  Country: None (occurrence: None)
  Receive Date: 20100927
  Receipt Date: 20090904
  Transmission Date: 20110219
  Serious: No
  Sender: FDA-Public Use
  Company Number: US-ASTRAZENECA-2009SE11526

PATIENT
  Age: 67 Year
  Sex: Female
  Weight: 72.6 kg

DRUGS (6)
  1. ARIMIDEX [Suspect]
     Route: 048
     Dates: start: 20050901
  2. FOSAMAX [Concomitant]
  3. CALCIUM SUPPLEMENTS [Concomitant]
  4. GENERIC FOR HCTZ [Concomitant]
  5. RAMIPRIL [Concomitant]
  6. AMLODIPINE BESYLATE [Concomitant]

REACTIONS (5)
  - ARTHRALGIA [None]
  - BODY HEIGHT DECREASED [None]
  - DEPRESSION [None]
  - HOT FLUSH [None]
  - TOOTH FRACTURE [None]
